FAERS Safety Report 19120601 (Version 1)
Quarter: 2021Q2

REPORT INFORMATION
  Report Type: Spontaneous
  Country: CY (occurrence: CY)
  Receive Date: 20210410
  Receipt Date: 20210410
  Transmission Date: 20210717
  Serious: No
  Sender: FDA-Public Use
  Company Number: None

PATIENT
  Age: 59 Year
  Sex: Female
  Weight: 64.6 kg

DRUGS (3)
  1. BONVIVA [Suspect]
     Active Substance: IBANDRONATE SODIUM
     Indication: OSTEOPOROSIS
     Dosage: ?          QUANTITY:1 TABLET(S);OTHER FREQUENCY:ONCE A MONTH;?
     Route: 048
     Dates: start: 20210402, end: 20210408
  2. LEVOTHYROXINE 25MG [Concomitant]
  3. OSTEOCAR 2 A DAY [Concomitant]

REACTIONS (9)
  - Chest pain [None]
  - Rash [None]
  - Paraesthesia [None]
  - Hypoaesthesia [None]
  - Spinal pain [None]
  - Chills [None]
  - Body temperature increased [None]
  - Pain [None]
  - Arthralgia [None]

NARRATIVE: CASE EVENT DATE: 20210403
